FAERS Safety Report 6306400-7 (Version None)
Quarter: 2009Q3

REPORT INFORMATION
  Report Type: 
  Country: None (occurrence: None)
  Receive Date: 20090812
  Receipt Date: 20090805
  Transmission Date: 20100115
  Serious: Yes (Hospitalization)
  Sender: FDA-Public Use
  Company Number: US-ELI_LILLY_AND_COMPANY-US200908001048

PATIENT
  Sex: Male

DRUGS (5)
  1. HUMALOG MIX 75/25 [Suspect]
  2. HUMALOG [Suspect]
     Route: 058
  3. CADUET [Concomitant]
  4. LANTUS [Concomitant]
  5. CATAPRES /USA/ [Concomitant]

REACTIONS (3)
  - BLOOD GLUCOSE DECREASED [None]
  - BLOOD GLUCOSE INCREASED [None]
  - DIABETIC COMA [None]
